FAERS Safety Report 8144370-X (Version None)
Quarter: 2012Q1

REPORT INFORMATION
  Report Type: 
  Country: None (occurrence: None)
  Receive Date: 20120217
  Receipt Date: 20120214
  Transmission Date: 20120608
  Serious: Yes (Life-Threatening, Hospitalization)
  Sender: FDA-Public Use
  Company Number: US-BAYER-200943669NA

PATIENT
  Age: 23 Year
  Sex: Female
  Weight: 52.608 kg

DRUGS (2)
  1. YASMIN [Suspect]
     Indication: CONTRACEPTION
     Dosage: 1 DF (DAILY DOSE), QD, ORAL
     Route: 048
     Dates: start: 20060201, end: 20060901
  2. YASMIN [Suspect]
     Dosage: UNK
     Dates: start: 20060101, end: 20080101

REACTIONS (3)
  - LUNG DISORDER [None]
  - THROMBOSIS [None]
  - PULMONARY EMBOLISM [None]
